FAERS Safety Report 9352123 (Version 2)
Quarter: 2013Q4

REPORT INFORMATION
  Report Type: Spontaneous
  Country: US (occurrence: US)
  Receive Date: 20130617
  Receipt Date: 20131022
  Transmission Date: 20140711
  Serious: Yes (Other)
  Sender: FDA-Public Use
  Company Number: US-BIOGENIDEC-2013BI052275

PATIENT
  Age: 52 Year
  Sex: Female

DRUGS (7)
  1. TECFIDERA [Suspect]
     Indication: MULTIPLE SCLEROSIS
     Route: 048
     Dates: start: 201304
  2. TECFIDERA [Suspect]
     Indication: MULTIPLE SCLEROSIS
     Route: 048
  3. ZOLOFT [Concomitant]
  4. NEURONTIN [Concomitant]
  5. LISISNOPRIL-HCTZ [Concomitant]
  6. AMITRIPTYLINE HCL [Concomitant]
  7. TRAMADOL HCL ER [Concomitant]

REACTIONS (5)
  - Herpes zoster [Not Recovered/Not Resolved]
  - Cyst [Unknown]
  - Vaginal cyst [Unknown]
  - Back pain [Unknown]
  - Furuncle [Not Recovered/Not Resolved]
